FAERS Safety Report 6930017-4 (Version None)
Quarter: 2010Q3

REPORT INFORMATION
  Report Type: 
  Country: None (occurrence: None)
  Receive Date: 20100818
  Receipt Date: 20100813
  Transmission Date: 20110219
  Serious: Yes (Death, Other)
  Sender: FDA-Public Use
  Company Number: US-SANOFI-AVENTIS-200918666US

PATIENT
  Age: 54 Year
  Sex: Female
  Weight: 123.62 kg

DRUGS (5)
  1. LOVENOX [Suspect]
     Dosage: DOSE AS USED: UNK
     Route: 058
  2. LOVENOX [Suspect]
     Dosage: DOSE AS USED: UNK
     Route: 058
  3. AGGRENOX [Suspect]
     Indication: THROMBOSIS PROPHYLAXIS
     Dosage: DOSE AS USED: UNK
  4. ZOLOFT [Concomitant]
     Dosage: DOSE AS USED: UNK
  5. CHOLESTEROL [Concomitant]

REACTIONS (8)
  - APNOEA [None]
  - BONE PAIN [None]
  - DRUG INEFFECTIVE [None]
  - LOSS OF CONSCIOUSNESS [None]
  - MALAISE [None]
  - PULMONARY EMBOLISM [None]
  - SPINAL CORD HAEMORRHAGE [None]
  - WEIGHT INCREASED [None]
